FAERS Safety Report 8889007 (Version 1)
Quarter: 2012Q4

REPORT INFORMATION
  Report Type: 
  Country: IT (occurrence: IT)
  Receive Date: 20121106
  Receipt Date: 20121106
  Transmission Date: 20130627
  Serious: Yes (Hospitalization)
  Sender: FDA-Public Use
  Company Number: PHHY2012IT100325

PATIENT
  Age: 1 Year
  Sex: Male

DRUGS (3)
  1. AMOXICILLIN + CLAVULANATE POTASSIUM [Suspect]
     Indication: COUGH
     Dosage: 10.5 ml, daily
     Route: 048
     Dates: start: 20120523, end: 20120527
  2. PARACETAMOL SANDOZ [Suspect]
     Indication: PYREXIA
     Dosage: 250 mg, daily
     Route: 048
     Dates: start: 20120523, end: 20120527
  3. VENTOLIN [Suspect]
     Indication: PRODUCTIVE COUGH
     Route: 048
     Dates: start: 20120523, end: 20120527

REACTIONS (2)
  - Acute haemorrhagic oedema of infancy [Recovered/Resolved]
  - Purpura [Recovered/Resolved]
